FAERS Safety Report 8107008-3 (Version None)
Quarter: 2012Q1

REPORT INFORMATION
  Report Type: 
  Country: None (occurrence: None)
  Receive Date: 20120202
  Receipt Date: 20120202
  Transmission Date: 20120608
  Serious: No
  Sender: FDA-Public Use
  Company Number: None

PATIENT
  Age: 72 Year
  Sex: Female
  Weight: 52.163 kg

DRUGS (1)
  1. XOPENEX [Suspect]
     Indication: ASTHMA
     Dosage: 1 PUFF
     Dates: start: 20101231, end: 20120131

REACTIONS (3)
  - PRURITUS [None]
  - PAIN [None]
  - LUNG DISORDER [None]
